FAERS Safety Report 9542669 (Version 2)
Quarter: 2013Q4

REPORT INFORMATION
  Report Type: Spontaneous
  Country: US (occurrence: US)
  Receive Date: 20130923
  Receipt Date: 20131007
  Transmission Date: 20140711
  Serious: No
  Sender: FDA-Public Use
  Company Number: US-PFIZER INC-2013269975

PATIENT
  Age: 62 Year
  Sex: Female

DRUGS (4)
  1. FLAGYL [Suspect]
     Indication: DIVERTICULITIS
     Dosage: UNK
     Dates: start: 20130521
  2. FLAGYL [Suspect]
     Dosage: UNK
  3. CIPRO [Suspect]
     Indication: DIVERTICULITIS
     Dosage: UNK
     Dates: start: 20130521
  4. PRILOSEC [Suspect]
     Indication: DIVERTICULITIS
     Dosage: UNK
     Dates: start: 20130521

REACTIONS (7)
  - Nausea [Recovering/Resolving]
  - Vomiting [Recovering/Resolving]
  - Diarrhoea [Recovering/Resolving]
  - Constipation [Recovering/Resolving]
  - Inflammation [Recovering/Resolving]
  - Drug hypersensitivity [Unknown]
  - Drug intolerance [Unknown]
